FAERS Safety Report 6661760-2 (Version None)
Quarter: 2010Q1

REPORT INFORMATION
  Report Type: 
  Country: None (occurrence: None)
  Receive Date: 20100331
  Receipt Date: 20090623
  Transmission Date: 20100710
  Serious: Yes (Life-Threatening, Hospitalization)
  Sender: FDA-Public Use
  Company Number: US-BRISTOL-MYERS SQUIBB COMPANY-14650188

PATIENT
  Age: 71 Year
  Sex: Male

DRUGS (9)
  1. ERBITUX [Suspect]
     Indication: COLON CANCER METASTATIC
     Dosage: 100MG;LOADING DOSE 800MG
     Route: 042
     Dates: start: 20090603, end: 20090603
  2. ARTHROTEC [Concomitant]
  3. NORVASC [Concomitant]
  4. ALTACE [Concomitant]
  5. IMODIUM [Concomitant]
     Dosage: 1DF-1-4TABS
  6. ZIAC [Concomitant]
     Dosage: 1DF-10/6.25 UNITS NOT MENTIONED
  7. COUMADIN [Concomitant]
     Dosage: 1DF-2.5,5MG
  8. ACTOS [Concomitant]
  9. LEVOTHYROXINE SODIUM [Concomitant]
     Dosage: 1DF-0.75 UNITS NOT MENTIONED, 1/2 TABS EVERY DAY 1TABS ONE DAY

REACTIONS (7)
  - COMA [None]
  - ERYTHEMA [None]
  - HYPOTENSION [None]
  - MALAISE [None]
  - PULSE ABSENT [None]
  - PYREXIA [None]
  - RESPIRATORY ARREST [None]
